FAERS Safety Report 5778020-4 (Version None)
Quarter: 2008Q2

REPORT INFORMATION
  Report Type: 
  Country: None (occurrence: None)
  Receive Date: 20080619
  Receipt Date: 20080612
  Transmission Date: 20081010
  Serious: Yes (Hospitalization, Other)
  Sender: FDA-Public Use
  Company Number: GB-BRISTOL-MYERS SQUIBB COMPANY-14225908

PATIENT
  Age: 48 Year
  Sex: Male

DRUGS (5)
  1. ARIPIPRAZOLE [Suspect]
     Dosage: AGAIN STARTED WITH 15MG 1/1DAY.
  2. METFORMIN [Suspect]
  3. OLANZAPINE [Suspect]
     Indication: SCHIZOPHRENIA, PARANOID TYPE
     Dosage: LATER INCREASED TO 25MG 1/1/DAY.
  4. RISPERIDONE [Suspect]
  5. GLICLAZIDE [Suspect]

REACTIONS (6)
  - HYPOGLYCAEMIA [None]
  - MENTAL DISORDER [None]
  - TREATMENT NONCOMPLIANCE [None]
  - TYPE 2 DIABETES MELLITUS [None]
  - URINARY INCONTINENCE [None]
  - WEIGHT DECREASED [None]
